FAERS Safety Report 12372480 (Version 1)
Quarter: 2016Q2

REPORT INFORMATION
  Report Type: Report from Study
  Country: US (occurrence: US)
  Receive Date: 20160516
  Receipt Date: 20160516
  Transmission Date: 20160815
  Serious: Yes (Hospitalization, Other)
  Sender: FDA-Public Use
  Company Number: US-GILEAD-2016-0213680

PATIENT
  Age: 63 Year
  Sex: Male

DRUGS (3)
  1. RIBAVIRIN. [Concomitant]
     Active Substance: RIBAVIRIN
     Dosage: 6 DF, QD
  2. SOFOSBUVIR [Suspect]
     Active Substance: SOFOSBUVIR
     Indication: HEPATITIS C
     Dosage: 1 DF, UNK
     Route: 048
  3. RIBAVIRIN. [Concomitant]
     Active Substance: RIBAVIRIN
     Dosage: 3 DF, QD

REACTIONS (15)
  - Pneumonia [Unknown]
  - Asbestosis [Unknown]
  - Drug dose omission [Unknown]
  - Emphysema [Unknown]
  - Weight decreased [Unknown]
  - Decreased appetite [Recovering/Resolving]
  - Hallucination, visual [Unknown]
  - Ammonia increased [Unknown]
  - Depression [Unknown]
  - Bronchitis chronic [Unknown]
  - Renal impairment [Unknown]
  - Diarrhoea [Unknown]
  - Paraesthesia [Unknown]
  - Emotional disorder [Unknown]
  - Cough [Unknown]

NARRATIVE: CASE EVENT DATE: 201604
